FAERS Safety Report 4999366-3 (Version None)
Quarter: 2006Q2

REPORT INFORMATION
  Report Type: 
  Country: None (occurrence: None)
  Receive Date: 20060509
  Receipt Date: 20060509
  Transmission Date: 20061013
  Serious: Yes (Life-Threatening)
  Sender: FDA-Public Use
  Company Number: None

PATIENT
  Age: 53 Year
  Sex: Male
  Weight: 76.7 kg

DRUGS (22)
  1. HYDROMORPHONE HCL [Suspect]
     Indication: PAIN
     Dosage: 5 MG  IV TOTAL
     Route: 042
     Dates: start: 20051213
  2. ACETAMINOPHEN [Concomitant]
  3. AMLODIPINE [Concomitant]
  4. ASPIRIN [Concomitant]
  5. CLONIDINE [Concomitant]
  6. INSULIN [Concomitant]
  7. FOLIC ACID [Concomitant]
  8. FUROSEMIDE [Concomitant]
  9. HYDRALAZINE HCL [Concomitant]
  10. IBUPROFEN [Concomitant]
  11. LACTULOSE [Concomitant]
  12. MAALOX FAST BLOCKER [Concomitant]
  13. METOLAZONE [Concomitant]
  14. METOPROLOL TARTRATE [Concomitant]
  15. MORPHINE [Concomitant]
  16. NITROGLYCERIN [Concomitant]
  17. CALC. ACETATE [Concomitant]
  18. PREDNISONE TAB [Concomitant]
  19. PROMETHAZINE [Concomitant]
  20. RANITIDINE [Concomitant]
  21. HEPARIN [Concomitant]
  22. SENNA [Concomitant]

REACTIONS (3)
  - BLOOD GASES ABNORMAL [None]
  - INCORRECT DOSE ADMINISTERED [None]
  - LOSS OF CONSCIOUSNESS [None]
